FAERS Safety Report 5913694-6 (Version None)
Quarter: 2008Q4

REPORT INFORMATION
  Report Type: 
  Country: None (occurrence: None)
  Receive Date: 20081007
  Receipt Date: 20080924
  Transmission Date: 20090506
  Serious: Yes (Hospitalization)
  Sender: FDA-Public Use
  Company Number: WAES 0807USA04312

PATIENT
  Age: 52 Year
  Sex: Male
  Weight: 58.9676 kg

DRUGS (19)
  1. TAB RALTEGRAVIR POTASSIUM UNK [Suspect]
     Dosage: 400 MG/BID/PO
     Route: 048
     Dates: start: 20080424, end: 20080718
  2. DARUNAVIR [Suspect]
     Dosage: 400 MG/BID/PO; 600 MG/BID/PO
     Route: 048
     Dates: start: 20080224, end: 20080718
  3. DARUNAVIR [Suspect]
     Dosage: 400 MG/BID/PO; 600 MG/BID/PO
     Route: 048
     Dates: start: 20080724
  4. ETRAVIRINE [Suspect]
     Dosage: 200 MG/BID/PO; 200 MG/BID/PO
     Route: 048
     Dates: start: 20080424, end: 20080718
  5. ETRAVIRINE [Suspect]
     Dosage: 200 MG/BID/PO; 200 MG/BID/PO
     Route: 048
     Dates: start: 20080724
  6. TRUVADA [Suspect]
     Dosage: 500 MG/DAILY/PO; 500 MG/DAILY/PO
     Route: 048
     Dates: start: 20041026, end: 20080718
  7. TRUVADA [Suspect]
     Dosage: 500 MG/DAILY/PO; 500 MG/DAILY/PO
     Route: 048
     Dates: start: 20080724
  8. RITONAVIR [Suspect]
     Dosage: 100 MG/BID/PO; 100 MG/BID/PO
     Route: 048
     Dates: start: 20080424, end: 20080718
  9. RITONAVIR [Suspect]
     Dosage: 100 MG/BID/PO; 100 MG/BID/PO
     Route: 048
     Dates: start: 20080724
  10. ZIDOVUDINE [Suspect]
     Dosage: 300 MG/BID/PO
     Route: 048
     Dates: start: 20050228, end: 20080718
  11. AMBIEN [Concomitant]
  12. IMODIUM A-D [Concomitant]
  13. INDERAL [Concomitant]
  14. LUNESTA [Concomitant]
  15. MEPRON [Concomitant]
  16. NEBUPENT [Concomitant]
  17. RESTORIL [Concomitant]
  18. TRICOR [Concomitant]
  19. TESTOSTERONE [Concomitant]

REACTIONS (7)
  - ABDOMINAL PAIN UPPER [None]
  - ALANINE AMINOTRANSFERASE INCREASED [None]
  - ASPARTATE AMINOTRANSFERASE INCREASED [None]
  - BLOOD LACTATE DEHYDROGENASE INCREASED [None]
  - DRUG INTERACTION [None]
  - PROCEDURAL PAIN [None]
  - RHABDOMYOLYSIS [None]
